FAERS Safety Report 23772374 (Version 1)
Quarter: 2024Q2

REPORT INFORMATION
  Report Type: Spontaneous
  Country: US (occurrence: None)
  Receive Date: 20240423
  Receipt Date: 20240423
  Transmission Date: 20240716
  Serious: Yes (Life-Threatening, Hospitalization)
  Sender: FDA-Public Use
  Company Number: 2024A095224

PATIENT
  Age: 71 Year
  Sex: Female

DRUGS (3)
  1. ROSUVASTATIN [Suspect]
     Active Substance: ROSUVASTATIN
     Route: 048
  2. INSULIN NOS [Concomitant]
     Active Substance: INSULIN NOS
  3. VALSARTAN [Concomitant]
     Active Substance: VALSARTAN

REACTIONS (2)
  - Immune-mediated myositis [Recovering/Resolving]
  - Rhabdomyolysis [Recovering/Resolving]
